FAERS Safety Report 13370270 (Version 2)
Quarter: 2017Q2

REPORT INFORMATION
  Report Type: Spontaneous
  Country: PT (occurrence: PT)
  Receive Date: 20170324
  Receipt Date: 20170420
  Transmission Date: 20170830
  Serious: Yes (Other)
  Sender: FDA-Public Use
  Company Number: PT-FRESENIUS KABI-FK201702254

PATIENT
  Age: 60 Year
  Sex: Male
  Weight: 93 kg

DRUGS (5)
  1. OXALIPLATIN 5MG/ML CONCENTRATE FOR SOLUTION FOR INFUSION [Suspect]
     Active Substance: OXALIPLATIN
     Indication: COLON NEOPLASM
     Route: 042
     Dates: start: 20170213, end: 20170313
  2. ORADEXON [Concomitant]
     Active Substance: DEXAMETHASONE
     Indication: PROPHYLAXIS OF NAUSEA AND VOMITING
     Route: 042
     Dates: start: 20170213
  3. ERBITUX [Concomitant]
     Active Substance: CETUXIMAB
     Indication: COLON NEOPLASM
     Route: 042
     Dates: start: 20170213
  4. CALCIUM FOLINATE [Concomitant]
     Active Substance: LEUCOVORIN CALCIUM
     Indication: COLON NEOPLASM
     Route: 042
     Dates: start: 20170213
  5. ONDANSETROM [Concomitant]
     Indication: PROPHYLAXIS OF NAUSEA AND VOMITING
     Route: 042
     Dates: start: 20170213

REACTIONS (8)
  - Cough [Recovered/Resolved]
  - Nasal congestion [Recovered/Resolved]
  - Flushing [Recovered/Resolved]
  - Type I hypersensitivity [Recovered/Resolved]
  - Respiratory distress [Recovered/Resolved]
  - Tremor [Recovered/Resolved]
  - Pyrexia [Recovered/Resolved]
  - Tachycardia [Recovered/Resolved]

NARRATIVE: CASE EVENT DATE: 20170227
